FAERS Safety Report 23404330 (Version 1)
Quarter: 2024Q1

REPORT INFORMATION
  Report Type: Spontaneous
  Country: US (occurrence: US)
  Receive Date: 20240116
  Receipt Date: 20240116
  Transmission Date: 20240410
  Serious: Yes (Other)
  Sender: FDA-Public Use
  Company Number: US-AMGEN-USASP2024003483

PATIENT

DRUGS (1)
  1. CARFILZOMIB [Suspect]
     Active Substance: CARFILZOMIB
     Indication: Plasma cell myeloma
     Dosage: UNK
     Route: 065

REACTIONS (15)
  - Mucosal inflammation [Unknown]
  - Febrile neutropenia [Unknown]
  - Ventricular tachycardia [Unknown]
  - Hypokalaemia [Unknown]
  - Hypophosphataemia [Unknown]
  - Diarrhoea [Unknown]
  - Nausea [Unknown]
  - Hypocalcaemia [Unknown]
  - Infection [Unknown]
  - Vomiting [Unknown]
  - Hypomagnesaemia [Unknown]
  - Decreased appetite [Unknown]
  - Dry mouth [Unknown]
  - Rash [Unknown]
  - Hypertension [Unknown]
